FAERS Safety Report 8155510-0 (Version None)
Quarter: 2012Q1

REPORT INFORMATION
  Report Type: 
  Country: None (occurrence: None)
  Receive Date: 20120215
  Receipt Date: 20120207
  Transmission Date: 20120608
  Serious: Yes (Other)
  Sender: FDA-Public Use
  Company Number: 2012SP007332

PATIENT
  Age: 47 Year
  Sex: Female

DRUGS (8)
  1. PEG-INTRON [Suspect]
     Indication: PRODUCT USED FOR UNKNOWN INDICATION
     Dosage: UNK, UNK
     Dates: start: 20111220, end: 20111227
  2. PEG-INTRON [Suspect]
     Indication: PRODUCT USED FOR UNKNOWN INDICATION
     Dosage: UNK, UNK
     Dates: start: 20120120
  3. REBETOL [Suspect]
     Indication: PRODUCT USED FOR UNKNOWN INDICATION
     Dosage: UNK;UNK, UNK;UNK
     Dates: start: 20111220, end: 20111227
  4. REBETOL [Suspect]
     Indication: PRODUCT USED FOR UNKNOWN INDICATION
     Dosage: UNK;UNK, UNK;UNK
     Dates: start: 20120120
  5. INCIVO (TELAPREVIR) (ANTIVIRALS NOS) [Suspect]
     Indication: HEPATITIS C
     Dates: start: 20111220, end: 20111227
  6. ESCITALOPRAM [Concomitant]
  7. ESCITALOPRAM OXALATE [Concomitant]
  8. ZOLPIDEM [Concomitant]

REACTIONS (1)
  - DRUG RASH WITH EOSINOPHILIA AND SYSTEMIC SYMPTOMS [None]
